FAERS Safety Report 12608407 (Version 1)
Quarter: 2016Q3

REPORT INFORMATION
  Report Type: Spontaneous
  Country: DE (occurrence: DE)
  Receive Date: 20160729
  Receipt Date: 20160729
  Transmission Date: 20161109
  Serious: Yes (Hospitalization)
  Sender: FDA-Public Use
  Company Number: DE-SA-2016SA134488

PATIENT
  Age: 45 Year
  Sex: Female

DRUGS (9)
  1. RANITIC [Concomitant]
     Active Substance: RANITIDINE HYDROCHLORIDE
  2. SYMBICORT [Concomitant]
     Active Substance: BUDESONIDE\FORMOTEROL FUMARATE DIHYDRATE
  3. SATIVEX [Concomitant]
     Active Substance: NABIXIMOLS
     Route: 045
  4. RAMIPRIL. [Concomitant]
     Active Substance: RAMIPRIL
  5. LEMTRADA [Suspect]
     Active Substance: ALEMTUZUMAB
     Route: 042
     Dates: end: 20160705
  6. SIRDALUD [Concomitant]
     Active Substance: TIZANIDINE
  7. ACICLOVIR [Concomitant]
     Active Substance: ACYCLOVIR
  8. TOLPERISONE [Concomitant]
     Active Substance: TOLPERISONE
  9. CETIRIZINE [Concomitant]
     Active Substance: CETIRIZINE HYDROCHLORIDE

REACTIONS (2)
  - Lymphopenia [Unknown]
  - Dyspnoea [Unknown]

NARRATIVE: CASE EVENT DATE: 20160705
